FAERS Safety Report 8548369-0 (Version None)
Quarter: 2012Q3

REPORT INFORMATION
  Report Type: 
  Country: None (occurrence: None)
  Receive Date: 20120730
  Receipt Date: 20120720
  Transmission Date: 20120928
  Serious: Yes (Other)
  Sender: FDA-Public Use
  Company Number: JP-JNJFOC-20120704971

PATIENT
  Age: 49 Year
  Sex: Female

DRUGS (6)
  1. DOXORUBICIN HYDROCHLORIDE [Suspect]
     Dosage: CYCLE 2
     Route: 042
  2. REBAMIPIDE [Concomitant]
     Route: 065
  3. BROTIZOLAM [Concomitant]
     Route: 065
  4. ASCORBIC ACID [Concomitant]
     Route: 065
  5. PYRIDOXAL PHOSPHATE [Concomitant]
     Route: 065
  6. DOXORUBICIN HYDROCHLORIDE [Suspect]
     Indication: OVARIAN EPITHELIAL CANCER
     Dosage: CYCLE 1
     Route: 042

REACTIONS (1)
  - INTERSTITIAL LUNG DISEASE [None]
